FAERS Safety Report 6695834-7 (Version None)
Quarter: 2010Q2

REPORT INFORMATION
  Report Type: 
  Country: None (occurrence: None)
  Receive Date: 20100401
  Receipt Date: 20100120
  Transmission Date: 20101027
  Serious: Yes (Other)
  Sender: FDA-Public Use
  Company Number: 222015USA

PATIENT
  Sex: Male

DRUGS (1)
  1. ETOPOSIDE [Suspect]
     Dosage: 20 MG/ML, INTRAVENOUS (NOT OTHERWISE SPECIFIED)
     Route: 042

REACTIONS (1)
  - BRONCHOSPASM [None]
